FAERS Safety Report 6090734-8 (Version None)
Quarter: 2009Q1

REPORT INFORMATION
  Report Type: 
  Country: None (occurrence: None)
  Receive Date: 20090224
  Receipt Date: 20090130
  Transmission Date: 20090719
  Serious: No
  Sender: FDA-Public Use
  Company Number: US-ABBOTT-09P-163-0501185-00

PATIENT
  Age: 70 Year
  Sex: Female
  Weight: 75.818 kg

DRUGS (5)
  1. SIMCOR [Suspect]
     Indication: BLOOD CHOLESTEROL INCREASED
     Dosage: 500/20 MG
     Dates: start: 20090129
  2. AMLODIPINE [Concomitant]
     Indication: HYPERTENSION
  3. METOPROLOL [Concomitant]
     Indication: HYPERTENSION
  4. MIRAPEX [Concomitant]
     Indication: MUSCLE SPASMS
  5. NORVASC [Concomitant]
     Indication: HYPERTENSION

REACTIONS (3)
  - AGITATION [None]
  - INSOMNIA [None]
  - PALPITATIONS [None]
